FAERS Safety Report 4813342-2 (Version None)
Quarter: 2005Q4

REPORT INFORMATION
  Report Type: 
  Country: None (occurrence: None)
  Receive Date: 20051028
  Receipt Date: 20050504
  Transmission Date: 20060501
  Serious: No
  Sender: FDA-Public Use
  Company Number: US-GLAXOSMITHKLINE-A0557258A

PATIENT
  Age: 75 Year
  Sex: Female

DRUGS (8)
  1. ADVAIR DISKUS 100/50 [Suspect]
     Indication: ASTHMA
     Dosage: 1PUFF TWICE PER DAY
     Route: 055
     Dates: start: 20050201, end: 20050429
  2. CARDIZEM [Concomitant]
  3. MAXZIDE [Concomitant]
  4. SYNTHROID [Concomitant]
  5. VITAMIN B-12 [Concomitant]
  6. ASPIRIN [Concomitant]
  7. LORATADINE [Concomitant]
  8. MUCINEX [Concomitant]

REACTIONS (3)
  - CHOKING SENSATION [None]
  - DYSPHAGIA [None]
  - TONGUE DISORDER [None]
